FAERS Safety Report 8795143 (Version 1)
Quarter: 2012Q4

REPORT INFORMATION
  Report Type: 
  Country: NL (occurrence: NL)
  Receive Date: 20120918
  Receipt Date: 20120918
  Transmission Date: 20130627
  Serious: Yes (Other)
  Sender: FDA-Public Use
  Company Number: NL-ROCHE-1131029

PATIENT

DRUGS (2)
  1. MABTHERA [Suspect]
     Indication: B-CELL LYMPHOMA
     Route: 065
  2. MABTHERA [Suspect]
     Indication: NON-HODGKIN^S LYMPHOMA

REACTIONS (3)
  - Thrombocytopenia [Unknown]
  - Melaena [Unknown]
  - Pharyngeal haemorrhage [Unknown]
